FAERS Safety Report 14020323 (Version 1)
Quarter: 2017Q3

REPORT INFORMATION
  Report Type: Spontaneous
  Country: AT (occurrence: AT)
  Receive Date: 20170928
  Receipt Date: 20170928
  Transmission Date: 20171128
  Serious: Yes (Hospitalization)
  Sender: FDA-Public Use
  Company Number: AT-TEVA-808998ROM

PATIENT
  Age: 87 Year
  Sex: Male

DRUGS (4)
  1. FENTANYL. [Suspect]
     Active Substance: FENTANYL
     Indication: RESTLESS LEGS SYNDROME
     Dosage: 37.5 MICROG/H
     Route: 062
  2. PRAMIPEXOLE. [Concomitant]
     Active Substance: PRAMIPEXOLE
     Indication: RESTLESS LEGS SYNDROME
     Dosage: .35 MILLIGRAM DAILY;
     Route: 065
  3. TILIDINE, NALOXONE [Interacting]
     Active Substance: NALOXONE HYDROCHLORIDE\TILIDINE HYDROCHLORIDE
     Dosage: ON HIS OWN INITIATIVE AT HIGH DOSE
     Route: 048
  4. PRAMIPEXOLE. [Concomitant]
     Active Substance: PRAMIPEXOLE
     Indication: RESTLESS LEGS SYNDROME
     Dosage: .18 MILLIGRAM DAILY; DAILY DOSE : 0.18 MG; FOR MORE THAN 12 MONTHS
     Route: 065

REACTIONS (6)
  - Restless legs syndrome [Recovered/Resolved]
  - Intentional overdose [Unknown]
  - Periodic limb movement disorder [Recovered/Resolved]
  - Drug withdrawal syndrome [Recovered/Resolved]
  - Intentional product misuse [Unknown]
  - Drug interaction [Unknown]
